FAERS Safety Report 7352113-2 (Version None)
Quarter: 2011Q1

REPORT INFORMATION
  Report Type: 
  Country: None (occurrence: None)
  Receive Date: 20110315
  Receipt Date: 20110308
  Transmission Date: 20110831
  Serious: Yes (Other)
  Sender: FDA-Public Use
  Company Number: US-ELI_LILLY_AND_COMPANY-US201103002850

PATIENT
  Sex: Male

DRUGS (2)
  1. INSULIN [Concomitant]
  2. BYETTA [Suspect]
     Indication: TYPE 2 DIABETES MELLITUS
     Route: 058

REACTIONS (3)
  - CARDIAC FAILURE [None]
  - BLOOD CREATININE INCREASED [None]
  - OFF LABEL USE [None]
